FAERS Safety Report 8499737-7 (Version None)
Quarter: 2012Q3

REPORT INFORMATION
  Report Type: 
  Country: None (occurrence: None)
  Receive Date: 20120703
  Receipt Date: 20120703
  Transmission Date: 20120928
  Serious: No
  Sender: FDA-Public Use
  Company Number: None

PATIENT
  Sex: Male

DRUGS (1)
  1. ENBREL 50MG PFS ABBOT [Suspect]
     Dosage: 50MG WEEKLY SQ
     Route: 058
     Dates: start: 20120426, end: 20120601

REACTIONS (2)
  - HEPATIC ENZYME INCREASED [None]
  - INJECTION SITE REACTION [None]
